FAERS Safety Report 10747284 (Version 2)
Quarter: 2015Q1

REPORT INFORMATION
  Report Type: Spontaneous
  Country: US (occurrence: None)
  Receive Date: 20150127
  Receipt Date: 20150209
  Transmission Date: 20150721
  Serious: Yes (Other)
  Sender: FDA-Public Use
  Company Number: FK201500343

PATIENT
  Age: 53 Year
  Sex: Male

DRUGS (5)
  1. BEVACIZUMAB (BEVACIZUMAB) [Concomitant]
     Active Substance: BEVACIZUMAB
  2. CISPLATIN (MANUFACTURER UNKNOWN) (CISPLATIN) (CISPLATIN) [Suspect]
     Active Substance: CISPLATIN
     Indication: OESOPHAGEAL CANCER METASTATIC
     Dosage: 6 CYCLE?
  3. CISPLATIN (MANUFACTURER UNKNOWN) (CISPLATIN) (CISPLATIN) [Suspect]
     Active Substance: CISPLATIN
     Indication: METASTASES TO MENINGES
     Dosage: 6 CYCLE?
  4. IRINOTECAN (MANUFACTURER UNKNOWN) (IRINOTECAN) (IRINOTECAN) [Suspect]
     Active Substance: IRINOTECAN
     Indication: OESOPHAGEAL CANCER METASTATIC
     Dosage: 6 CYCLE
  5. IRINOTECAN (MANUFACTURER UNKNOWN) (IRINOTECAN) (IRINOTECAN) [Suspect]
     Active Substance: IRINOTECAN
     Indication: METASTASES TO MENINGES
     Dosage: 6 CYCLE

REACTIONS (3)
  - General physical health deterioration [None]
  - Fatigue [None]
  - Cytopenia [None]
